FAERS Safety Report 6660624-8 (Version None)
Quarter: 2010Q1

REPORT INFORMATION
  Report Type: 
  Country: None (occurrence: None)
  Receive Date: 20100326
  Receipt Date: 20100315
  Transmission Date: 20100710
  Serious: Yes (Other)
  Sender: FDA-Public Use
  Company Number: 008804

PATIENT
  Age: 80 Year
  Sex: Female

DRUGS (2)
  1. KEPPRA [Suspect]
  2. LAMOTRIGINE [Concomitant]

REACTIONS (1)
  - LIVER DISORDER [None]
